FAERS Safety Report 13933576 (Version 1)
Quarter: 2017Q3

REPORT INFORMATION
  Report Type: Spontaneous
  Country: US (occurrence: US)
  Receive Date: 20170904
  Receipt Date: 20170904
  Transmission Date: 20171127
  Serious: No
  Sender: FDA-Public Use
  Company Number: US-TEVA-789054ACC

PATIENT

DRUGS (1)
  1. BUPRENORPHINE. [Suspect]
     Active Substance: BUPRENORPHINE
     Route: 065

REACTIONS (9)
  - Fatigue [Unknown]
  - Somnolence [Unknown]
  - Anger [Unknown]
  - Decreased interest [Unknown]
  - Depression [Unknown]
  - Feeling abnormal [Unknown]
  - Headache [Not Recovered/Not Resolved]
  - Sluggishness [Unknown]
  - Hypoaesthesia [Unknown]
